FAERS Safety Report 8806252 (Version 1)
Quarter: 2012Q4

REPORT INFORMATION
  Report Type: 
  Country: MX (occurrence: MX)
  Receive Date: 20120925
  Receipt Date: 20120925
  Transmission Date: 20130627
  Serious: Yes (Hospitalization)
  Sender: FDA-Public Use
  Company Number: PHHY2012MX082704

PATIENT
  Sex: Female

DRUGS (4)
  1. ZELMAC [Suspect]
     Indication: IRRITABLE BOWEL SYNDROME
     Dosage: 6 mg, daily
     Dates: start: 201005, end: 201008
  2. SERTRALINE [Concomitant]
     Indication: DEPRESSION
     Dosage: 1 DF, daily
     Dates: start: 2002
  3. ALPRAZOLAM [Concomitant]
     Indication: ANXIETY
     Dosage: 1 DF, daily
  4. GALVUS [Concomitant]
     Indication: DIABETES MELLITUS
     Dosage: 1 DF, daily
     Dates: start: 201201, end: 201208

REACTIONS (2)
  - Haemorrhage [Recovered/Resolved]
  - Hysterectomy [None]
